FAERS Safety Report 7805365-6 (Version None)
Quarter: 2011Q4

REPORT INFORMATION
  Report Type: 
  Country: None (occurrence: None)
  Receive Date: 20111010
  Receipt Date: 20110930
  Transmission Date: 20120403
  Serious: Yes (Other)
  Sender: FDA-Public Use
  Company Number: US-ASTRAZENECA-2011SE18014

PATIENT
  Age: 80 Year
  Sex: Female
  Weight: 64.9 kg

DRUGS (10)
  1. CLONIDINE [Concomitant]
     Dosage: DAILY
     Route: 048
  2. LOVASTATIN [Concomitant]
  3. AMLODIPINE [Concomitant]
     Route: 048
  4. CLONIDINE [Concomitant]
     Route: 048
  5. HYDROCHLOROTHIAZIDE [Concomitant]
     Route: 048
  6. ARIMIDEX [Suspect]
     Indication: BREAST CANCER
     Route: 048
     Dates: start: 20110101
  7. LISINOPRIL [Concomitant]
     Route: 048
  8. BYSTOLIC [Concomitant]
     Route: 048
  9. LASIX [Concomitant]
  10. MIRALAX [Concomitant]

REACTIONS (12)
  - HYPERCHOLESTEROLAEMIA [None]
  - NEOPLASM MALIGNANT [None]
  - ARTHRALGIA [None]
  - FIBROADENOMA OF BREAST [None]
  - METASTASES TO LYMPH NODES [None]
  - BREAST CALCIFICATIONS [None]
  - HYPERTENSIVE HEART DISEASE [None]
  - BREAST CANCER IN SITU [None]
  - BLOOD PRESSURE INCREASED [None]
  - LYMPHOEDEMA [None]
  - CORONARY ARTERY DISEASE [None]
  - SKIN PAPILLOMA [None]
